FAERS Safety Report 10515474 (Version 1)
Quarter: 2014Q4

REPORT INFORMATION
  Report Type: Spontaneous
  Country: US (occurrence: None)
  Receive Date: 20141009
  Receipt Date: 20141009
  Transmission Date: 20150528
  Serious: Yes (Hospitalization)
  Sender: FDA-Public Use
  Company Number: 2563635

PATIENT
  Age: 11 Year
  Sex: Male

DRUGS (1)
  1. LIDOCAINE HYDROCHLORIDE. [Suspect]
     Active Substance: LIDOCAINE HYDROCHLORIDE
     Indication: JUVENILE IDIOPATHIC ARTHRITIS
     Route: 014

REACTIONS (7)
  - Pallor [None]
  - Injection site pain [None]
  - Skin graft [None]
  - Embolia cutis medicamentosa [None]
  - Skin discolouration [None]
  - Feeling cold [None]
  - Extremity necrosis [None]
